FAERS Safety Report 19403220 (Version 2)
Quarter: 2021Q3

REPORT INFORMATION
  Report Type: Spontaneous
  Country: LB (occurrence: LB)
  Receive Date: 20210610
  Receipt Date: 20210713
  Transmission Date: 20211014
  Serious: Yes (Other)
  Sender: FDA-Public Use
  Company Number: LB-PFIZER INC-2021621208

PATIENT
  Age: 70 Year
  Sex: Male

DRUGS (2)
  1. COVID?19 VACCINE [Concomitant]
  2. XELJANZ XR [Suspect]
     Active Substance: TOFACITINIB CITRATE
     Indication: RHEUMATOID ARTHRITIS
     Dosage: 11 MG, 1X/DAY
     Route: 048

REACTIONS (2)
  - Peripheral artery thrombosis [Not Recovered/Not Resolved]
  - Product dose omission issue [Not Recovered/Not Resolved]
